FAERS Safety Report 6585332-3 (Version None)
Quarter: 2010Q1

REPORT INFORMATION
  Report Type: 
  Country: None (occurrence: None)
  Receive Date: 20100216
  Receipt Date: 20100216
  Transmission Date: 20100710
  Serious: Yes (Other)
  Sender: FDA-Public Use
  Company Number: None

PATIENT
  Age: 94 Year
  Sex: Female
  Weight: 43.0917 kg

DRUGS (2)
  1. LANSOPRAZOLE 30MG DAILY LANSOPRAZOLE [Suspect]
     Indication: GASTROOESOPHAGEAL REFLUX DISEASE
     Dosage: QDAY 30MG PO
     Route: 048
     Dates: start: 20100129
  2. OMEPRAZOLE [Suspect]
     Dosage: 20MG BID PO
     Route: 048
     Dates: start: 20081119, end: 20091231

REACTIONS (2)
  - ABDOMINAL PAIN UPPER [None]
  - WEIGHT DECREASED [None]
